FAERS Safety Report 20108951 (Version 2)
Quarter: 2021Q4

REPORT INFORMATION
  Report Type: Spontaneous
  Country: US (occurrence: US)
  Receive Date: 20211124
  Receipt Date: 20211208
  Transmission Date: 20220303
  Serious: No
  Sender: FDA-Public Use
  Company Number: US-BEH-2021138445

PATIENT
  Age: 60 Year
  Sex: Female
  Weight: 63.492 kg

DRUGS (18)
  1. HIZENTRA [Suspect]
     Active Substance: HUMAN IMMUNOGLOBULIN G
     Dosage: 13 GRAM, QW
     Route: 058
  2. HIZENTRA [Suspect]
     Active Substance: HUMAN IMMUNOGLOBULIN G
     Dosage: 1 GRAM, QW
     Route: 058
  3. HIZENTRA [Suspect]
     Active Substance: HUMAN IMMUNOGLOBULIN G
     Dosage: 2 GRAM, QW
     Route: 058
  4. HIZENTRA [Suspect]
     Active Substance: HUMAN IMMUNOGLOBULIN G
     Dosage: 10 GRAM, QW
     Route: 058
  5. HIZENTRA [Suspect]
     Active Substance: HUMAN IMMUNOGLOBULIN G
     Dosage: 10 GRAM, QW
     Route: 058
  6. HIZENTRA [Suspect]
     Active Substance: HUMAN IMMUNOGLOBULIN G
     Dosage: 13 GRAM, TOT
     Route: 058
     Dates: start: 20211025, end: 20211025
  7. HIZENTRA [Suspect]
     Active Substance: HUMAN IMMUNOGLOBULIN G
     Dosage: 13 GRAM, TOT
     Route: 058
     Dates: start: 20211101, end: 20211101
  8. HIZENTRA [Suspect]
     Active Substance: HUMAN IMMUNOGLOBULIN G
     Dosage: 13 GRAM, TOT
     Route: 058
     Dates: start: 20211108, end: 20211108
  9. SYNTHROID [Concomitant]
     Active Substance: LEVOTHYROXINE SODIUM
     Indication: Hypothyroidism
     Dosage: 125 MICROGRAM
     Route: 048
  10. LOSARTAN [Concomitant]
     Active Substance: LOSARTAN
     Indication: Hypertension
     Dosage: 50 MILLIGRAM
     Route: 048
  11. ALLEGRA [Concomitant]
     Active Substance: FEXOFENADINE HYDROCHLORIDE
     Indication: Hypersensitivity
     Dosage: 180 MILLIGRAM, PRN
     Route: 048
  12. IBUPROFEN [Concomitant]
     Active Substance: IBUPROFEN
     Indication: Pain
     Dosage: 200 MILLIGRAM, PRN
     Route: 048
     Dates: start: 2017
  13. IBUPROFEN [Concomitant]
     Active Substance: IBUPROFEN
     Indication: Headache
  14. ASPIRIN [Concomitant]
     Active Substance: ASPIRIN
     Dosage: 81 MILLIGRAM
     Route: 048
  15. VITAMINS NOS [Concomitant]
     Active Substance: VITAMINS
     Indication: Supplementation therapy
     Route: 048
  16. ADVAIR HFA [Concomitant]
     Active Substance: FLUTICASONE PROPIONATE\SALMETEROL XINAFOATE
     Dosage: 100/50 MG
     Route: 048
  17. ALBUTEROL [Concomitant]
     Active Substance: ALBUTEROL
     Dosage: 2.5 MG/3 ML VIA NEBULIZER
  18. CLONAZEPAM [Concomitant]
     Active Substance: CLONAZEPAM
     Dosage: 0.5 MILLIGRAM
     Route: 048

REACTIONS (12)
  - Malaise [Unknown]
  - Influenza like illness [Unknown]
  - Urticaria [Recovered/Resolved]
  - Rash [Recovered/Resolved]
  - Ill-defined disorder [Recovered/Resolved]
  - Malaise [Unknown]
  - Fatigue [Recovered/Resolved]
  - Urticaria [Recovered/Resolved]
  - Rash [Recovered/Resolved]
  - Malaise [Unknown]
  - Ill-defined disorder [Unknown]
  - Chills [Recovered/Resolved]

NARRATIVE: CASE EVENT DATE: 20211025
